FAERS Safety Report 9225238 (Version 2)
Quarter: 2013Q2

REPORT INFORMATION
  Report Type: Report from Study
  Country: US (occurrence: US)
  Receive Date: 20130411
  Receipt Date: 20130612
  Transmission Date: 20140414
  Serious: Yes (Other)
  Sender: FDA-Public Use
  Company Number: PHEH2013US001290

PATIENT
  Sex: Female

DRUGS (7)
  1. GLEEVEC [Suspect]
     Indication: CHRONIC MYELOID LEUKAEMIA
     Dosage: 400 MG, QD
     Route: 048
     Dates: start: 20130104
  2. GLEEVEC [Suspect]
     Dosage: 400 MG, DAILY
     Route: 048
  3. CENTRUM SILVER [Concomitant]
     Dosage: UNK UKN, UNK
  4. VICODIN [Concomitant]
     Dosage: UNK UKN, UNK
  5. LEVOTHYROXINE [Concomitant]
     Dosage: UNK UKN, UNK
  6. PRILOSEC [Concomitant]
     Dosage: UNK UKN, UNK
  7. CALCIUM + VITAMIN D                /01483701/ [Concomitant]
     Dosage: UNK UKN, UNK

REACTIONS (9)
  - Pleurisy [Recovered/Resolved]
  - Nausea [Recovering/Resolving]
  - Blood iron decreased [Unknown]
  - Oedema peripheral [Unknown]
  - Periorbital oedema [Unknown]
  - Rash [Unknown]
  - Diarrhoea [Unknown]
  - Joint swelling [Unknown]
  - Eye swelling [Unknown]
